FAERS Safety Report 5429347-7 (Version None)
Quarter: 2007Q3

REPORT INFORMATION
  Report Type: 
  Country: None (occurrence: None)
  Receive Date: 20070731
  Receipt Date: 20070402
  Transmission Date: 20080115
  Serious: No
  Sender: FDA-Public Use
  Company Number: US200704000234

PATIENT
  Age: 49 Year
  Sex: Female
  Weight: 135.6 kg

DRUGS (6)
  1. BYETTA [Suspect]
     Indication: TYPE 2 DIABETES MELLITUS
     Dosage: 10 UG, 2/D, SUBCUTANEOUS; 5 UG, 2/D, SUBCUTANEOUS
     Route: 058
     Dates: start: 20070201, end: 20070321
  2. BYETTA [Suspect]
     Indication: TYPE 2 DIABETES MELLITUS
     Dosage: 10 UG, 2/D, SUBCUTANEOUS; 5 UG, 2/D, SUBCUTANEOUS
     Route: 058
     Dates: start: 20070322
  3. METFORMIN HCL [Concomitant]
  4. ANTIBIOTICS [Concomitant]
  5. NOVOLIN 70/30 [Concomitant]
  6. NOVOLIN R [Concomitant]

REACTIONS (3)
  - ABSCESS NECK [None]
  - BLOOD GLUCOSE INCREASED [None]
  - WEIGHT DECREASED [None]
